FAERS Safety Report 5955489-3 (Version None)
Quarter: 2008Q4

REPORT INFORMATION
  Report Type: 
  Country: None (occurrence: None)
  Receive Date: 20081117
  Receipt Date: 20081112
  Transmission Date: 20090506
  Serious: Yes (Other)
  Sender: FDA-Public Use
  Company Number: CA-JNJFOC-20081102630

PATIENT
  Age: 42 Year
  Sex: Female
  Weight: 90 kg

DRUGS (6)
  1. REMICADE [Suspect]
     Dosage: 8TH INFUSION
     Route: 042
  2. REMICADE [Suspect]
     Dosage: 7TH INFUSION ON UNSPECIFIED DATE
     Route: 042
  3. REMICADE [Suspect]
     Indication: SARCOIDOSIS
     Dosage: 5 INFUSIONS ON UNSPECIFIED DATES.
     Route: 042
  4. REMICADE [Suspect]
     Indication: UVEITIS
     Route: 042
  5. METHOTREXATE [Concomitant]
  6. PREDNISONE TAB [Concomitant]

REACTIONS (3)
  - DYSPNOEA [None]
  - HYPOAESTHESIA [None]
  - SKIN DISORDER [None]
